FAERS Safety Report 6462661-5 (Version None)
Quarter: 2009Q4

REPORT INFORMATION
  Report Type: 
  Country: None (occurrence: None)
  Receive Date: 20091130
  Receipt Date: 20091116
  Transmission Date: 20100525
  Serious: Yes (Death, Other)
  Sender: FDA-Public Use
  Company Number: DE-GENENTECH-294803

PATIENT

DRUGS (2)
  1. HERCEPTIN [Suspect]
     Indication: BREAST CANCER METASTATIC
     Dosage: 4 MG/KG, UNK
     Route: 065
  2. LIPOSOMAL DOXORUBICINE [Suspect]
     Indication: BREAST CANCER METASTATIC
     Dosage: 40 MG/KG, Q4W
     Route: 040

REACTIONS (6)
  - ATRIOVENTRICULAR BLOCK [None]
  - EJECTION FRACTION DECREASED [None]
  - HEPATIC FAILURE [None]
  - HYPERSENSITIVITY [None]
  - PALMAR-PLANTAR ERYTHRODYSAESTHESIA SYNDROME [None]
  - THROMBOSIS [None]
